FAERS Safety Report 16278126 (Version 1)
Quarter: 2019Q2

REPORT INFORMATION
  Report Type: Spontaneous
  Country: FR (occurrence: FR)
  Receive Date: 20190506
  Receipt Date: 20190506
  Transmission Date: 20190711
  Serious: Yes (Disabling)
  Sender: FDA-Public Use
  Company Number: FR-MYLANLABS-2019M1042457

PATIENT
  Age: 70 Year
  Sex: Female

DRUGS (3)
  1. AVASTIN [Suspect]
     Active Substance: BEVACIZUMAB
     Indication: ENDOMETRIAL ADENOCARCINOMA
     Dosage: 15 MILLIGRAM/KILOGRAM, CYCLE
     Route: 042
     Dates: start: 20171027
  2. CARBOPLATIN. [Suspect]
     Active Substance: CARBOPLATIN
     Indication: ENDOMETRIAL ADENOCARCINOMA
     Dosage: 398 MILLIGRAM, CYCLE
     Route: 042
     Dates: start: 20171027, end: 20180208
  3. PACLITAXEL. [Suspect]
     Active Substance: PACLITAXEL
     Indication: ENDOMETRIAL ADENOCARCINOMA
     Dosage: 175 MILLIGRAM/SQ. METER, CYCLE
     Route: 042
     Dates: start: 20171027, end: 20180208

REACTIONS (2)
  - Arthralgia [Not Recovered/Not Resolved]
  - Neuropathy peripheral [Not Recovered/Not Resolved]

NARRATIVE: CASE EVENT DATE: 20171116
